FAERS Safety Report 4843109-0 (Version None)
Quarter: 2005Q4

REPORT INFORMATION
  Report Type: 
  Country: None (occurrence: None)
  Receive Date: 20051027
  Receipt Date: 20050907
  Transmission Date: 20060501
  Serious: No
  Sender: FDA-Public Use
  Company Number: ZICO001289

PATIENT
  Age: 61 Year
  Sex: Male

DRUGS (7)
  1. PRIALT [Suspect]
     Dosage: (10057097)
  2. METHADONE (METHADONE) [Concomitant]
  3. ATENENTOL (ANETHOLE) [Concomitant]
  4. ZELCOR (ZELCOR) [Concomitant]
  5. XANAX [Concomitant]
  6. BENADRYL [Concomitant]
  7. ACETAMINOPHEN [Concomitant]

REACTIONS (4)
  - DECREASED ACTIVITY [None]
  - DISTURBANCE IN SOCIAL BEHAVIOUR [None]
  - DRUG WITHDRAWAL SYNDROME [None]
  - FATIGUE [None]
